FAERS Safety Report 6228513-0 (Version None)
Quarter: 2009Q2

REPORT INFORMATION
  Report Type: 
  Country: None (occurrence: None)
  Receive Date: 20090611
  Receipt Date: 20090611
  Transmission Date: 20091009
  Serious: Yes (Other)
  Sender: FDA-Public Use
  Company Number: None

PATIENT
  Sex: Male
  Weight: 68 kg

DRUGS (1)
  1. TOPIRAMATE [Suspect]
     Indication: EPILEPSY
     Dosage: 100 MG TAB 1 TAB  AM PO 2 TABS Q PM PO
     Route: 048
     Dates: start: 20090501

REACTIONS (5)
  - FALL [None]
  - FOOT FRACTURE [None]
  - JOINT DISLOCATION [None]
  - LOSS OF CONSCIOUSNESS [None]
  - RIB FRACTURE [None]
